FAERS Safety Report 12723115 (Version 1)
Quarter: 2016Q3

REPORT INFORMATION
  Report Type: Spontaneous
  Country: US (occurrence: US)
  Receive Date: 20160908
  Receipt Date: 20160908
  Transmission Date: 20161109
  Serious: Yes (Other)
  Sender: FDA-Public Use
  Company Number: US-ZYDUS-012055

PATIENT
  Age: 60 Year
  Sex: Male

DRUGS (3)
  1. DOXYCYCLINE. [Suspect]
     Active Substance: DOXYCYCLINE
     Indication: MALAISE
     Route: 065
  2. LEVOTHYROXINE. [Concomitant]
     Active Substance: LEVOTHYROXINE
     Indication: GASTROOESOPHAGEAL REFLUX DISEASE
     Route: 065
  3. OMEPRAZOLE. [Suspect]
     Active Substance: OMEPRAZOLE
     Indication: GASTROOESOPHAGEAL REFLUX DISEASE
     Route: 065

REACTIONS (11)
  - Weight decreased [Unknown]
  - Anaemia [Unknown]
  - Myalgia [Unknown]
  - Polyuria [Unknown]
  - Pyrexia [Unknown]
  - Night sweats [Unknown]
  - Decreased appetite [Unknown]
  - Drug ineffective [Unknown]
  - Chills [Unknown]
  - Nocturia [Unknown]
  - Tubulointerstitial nephritis [Unknown]
